FAERS Safety Report 9290132 (Version 1)
Quarter: 2013Q2

REPORT INFORMATION
  Report Type: Spontaneous
  Country: US (occurrence: US)
  Receive Date: 20130515
  Receipt Date: 20130515
  Transmission Date: 20140414
  Serious: No
  Sender: FDA-Public Use
  Company Number: US-OPTIMER-20120042

PATIENT
  Sex: Female

DRUGS (2)
  1. DIFICID [Suspect]
     Indication: CLOSTRIDIAL INFECTION
     Dosage: UNK
  2. DIFICID [Suspect]
     Dosage: UNK

REACTIONS (2)
  - Pharyngeal oedema [Unknown]
  - Chest discomfort [Unknown]
